FAERS Safety Report 19031550 (Version 1)
Quarter: 2021Q1

REPORT INFORMATION
  Report Type: Report from Study
  Country: US (occurrence: US)
  Receive Date: 20210319
  Receipt Date: 20210319
  Transmission Date: 20210420
  Serious: Yes (Other)
  Sender: FDA-Public Use
  Company Number: US-EMD SERONO-9225780

PATIENT
  Sex: Female

DRUGS (1)
  1. REBIF [Suspect]
     Active Substance: INTERFERON BETA-1A
     Indication: PRODUCT USED FOR UNKNOWN INDICATION
     Route: 058
     Dates: start: 20161201

REACTIONS (6)
  - Intervertebral disc degeneration [Unknown]
  - Ligamentum flavum hypertrophy [Unknown]
  - Pain in extremity [Unknown]
  - Myeloproliferative neoplasm [Unknown]
  - Marrow hyperplasia [Unknown]
  - Facet joint syndrome [Unknown]
